FAERS Safety Report 10080996 (Version 1)
Quarter: 2014Q2

REPORT INFORMATION
  Report Type: Spontaneous
  Country: US (occurrence: US)
  Receive Date: 20140416
  Receipt Date: 20140416
  Transmission Date: 20141212
  Serious: No
  Sender: FDA-Public Use
  Company Number: US-PFIZER INC-2014101653

PATIENT
  Age: 33 Year
  Sex: Male
  Weight: 58.96 kg

DRUGS (1)
  1. BICILLIN L-A [Suspect]
     Dosage: 2.4 MILLIONIU, UNK
     Route: 030
     Dates: start: 20140328

REACTIONS (5)
  - Injection site pain [Recovering/Resolving]
  - Injection site induration [Recovering/Resolving]
  - Injection site erythema [Recovering/Resolving]
  - Injection site oedema [Recovering/Resolving]
  - Injection site warmth [Recovering/Resolving]
